FAERS Safety Report 4602512-4 (Version None)
Quarter: 2005Q1

REPORT INFORMATION
  Report Type: 
  Country: None (occurrence: None)
  Receive Date: 20050307
  Receipt Date: 20050223
  Transmission Date: 20050727
  Serious: Yes (Hospitalization)
  Sender: FDA-Public Use
  Company Number: 2005035974

PATIENT
  Sex: Male
  Weight: 90.7194 kg

DRUGS (9)
  1. BEXTRA [Suspect]
     Indication: ARTHRALGIA
     Dosage: 10 MG (10 MG, 1 IN 1 D), ORAL
     Route: 048
     Dates: start: 20050221, end: 20050223
  2. CELEBREX [Suspect]
     Indication: ARTHRALGIA
     Dosage: ( 1 IN 1 D), ORAL
     Route: 048
     Dates: start: 20000101, end: 20041201
  3. METOPROLOL TARTRATE [Concomitant]
  4. ISOSORBIDE (ISOSORBIDE) [Concomitant]
  5. CLOPIDOGREL BISULFATE [Concomitant]
  6. OMEPRAZOLE [Concomitant]
  7. MULTIVITAMINS (ASCORBIC ACID, ERGOCALCIFEROL, FOLIC ACID, NICOTINAMIDE [Concomitant]
  8. ASPIRIN [Concomitant]
  9. ASASANTIN (ACETYLSALICYLIC ACID, DIPYRIDAMOLE) [Concomitant]

REACTIONS (9)
  - DIZZINESS [None]
  - DRUG EFFECT DECREASED [None]
  - DYSPNOEA [None]
  - LIP DISCOLOURATION [None]
  - MYOCARDIAL INFARCTION [None]
  - PRURITUS [None]
  - SWELLING FACE [None]
  - TRANSIENT ISCHAEMIC ATTACK [None]
  - URTICARIA [None]
